FAERS Safety Report 9646255 (Version 3)
Quarter: 2013Q4

REPORT INFORMATION
  Report Type: Report from Study
  Country: BR (occurrence: BR)
  Receive Date: 20131025
  Receipt Date: 20131115
  Transmission Date: 20140711
  Serious: Yes (Hospitalization)
  Sender: FDA-Public Use
  Company Number: BR-B.I. PHARMACEUTICALS,INC./RIDGEFIELD-2013-BI-33343BI

PATIENT
  Age: 34 Year
  Sex: Female
  Weight: 56.8 kg

DRUGS (4)
  1. BIBW 2992 [Suspect]
     Indication: SQUAMOUS CELL CARCINOMA OF HEAD AND NECK
     Dosage: 50 MG
     Route: 048
     Dates: start: 20130912, end: 20131016
  2. BIBW 2992 [Suspect]
     Dosage: 40 MG
     Route: 048
     Dates: start: 20131024
  3. OMEPRAZOLE [Concomitant]
     Indication: PROPHYLAXIS
     Dosage: ROUTE EV, DAILY DOSE - ONCE A DAY
     Dates: start: 20131019, end: 20131024
  4. NUTRIDRINK [Concomitant]
     Indication: VITAMIN SUPPLEMENTATION
     Dosage: 3 TIMES A DAY
     Route: 048
     Dates: start: 20131018, end: 20131024

REACTIONS (1)
  - Pneumonia aspiration [Recovered/Resolved]
